FAERS Safety Report 13610359 (Version 1)
Quarter: 2017Q2

REPORT INFORMATION
  Report Type: Spontaneous
  Country: US (occurrence: US)
  Receive Date: 20170602
  Receipt Date: 20170602
  Transmission Date: 20170830
  Serious: Yes (Disabling)
  Sender: FDA-Public Use
  Company Number: None

PATIENT
  Age: 38 Year
  Sex: Female
  Weight: 66.6 kg

DRUGS (7)
  1. GABAPENTIN. [Suspect]
     Active Substance: GABAPENTIN
     Indication: COMPLEX REGIONAL PAIN SYNDROME
     Dosage: ?          QUANTITY:3 CAPSULE(S);?
     Route: 048
  2. VITAMIN B12 [Concomitant]
     Active Substance: CYANOCOBALAMIN
  3. CALCIUM MAGNESIUM VITAMIN D [Concomitant]
  4. LIDOCAINE PATCH [Concomitant]
     Active Substance: LIDOCAINE
  5. OXYCODONE [Concomitant]
     Active Substance: OXYCODONE
  6. VITAMIN C [Concomitant]
     Active Substance: ASCORBIC ACID
  7. SPINAL CORD STIMULATOR [Concomitant]

REACTIONS (3)
  - Vision blurred [None]
  - Memory impairment [None]
  - Impaired driving ability [None]

NARRATIVE: CASE EVENT DATE: 20160915
